FAERS Safety Report 7933640-3 (Version None)
Quarter: 2011Q4

REPORT INFORMATION
  Report Type: 
  Country: None (occurrence: None)
  Receive Date: 20111122
  Receipt Date: 20111111
  Transmission Date: 20120403
  Serious: Yes (Other)
  Sender: FDA-Public Use
  Company Number: US-MYLANLABS-2011S1016549

PATIENT
  Age: 21 Year
  Sex: Female

DRUGS (3)
  1. AMNESTEEM [Suspect]
     Dates: start: 20110305
  2. AMNESTEEM [Suspect]
     Dates: start: 20110305
  3. AMNESTEEM [Suspect]
     Route: 048
     Dates: end: 20110609

REACTIONS (2)
  - SKIN MASS [None]
  - MATERNAL EXPOSURE BEFORE PREGNANCY [None]
